FAERS Safety Report 19977439 (Version 1)
Quarter: 2021Q4

REPORT INFORMATION
  Report Type: Report from Study
  Country: CN (occurrence: CN)
  Receive Date: 20211021
  Receipt Date: 20211021
  Transmission Date: 20220303
  Serious: Yes (Death)
  Sender: FDA-Public Use
  Company Number: CN-SA-2019SA253380

PATIENT
  Age: 65 Year
  Sex: Female
  Weight: 56 kg

DRUGS (57)
  1. ISATUXIMAB [Suspect]
     Active Substance: ISATUXIMAB
     Indication: Plasma cell myeloma
     Dosage: 10 MG/KG, QOW
     Route: 042
     Dates: start: 20190819, end: 20190819
  2. ISATUXIMAB [Suspect]
     Active Substance: ISATUXIMAB
     Dosage: 10 MG/KG, QW
     Route: 042
     Dates: start: 20190527, end: 20190527
  3. BORTEZOMIB [Suspect]
     Active Substance: BORTEZOMIB
     Indication: Plasma cell myeloma
     Dosage: 1 MG/M2, OTHER
     Route: 058
     Dates: start: 20190829, end: 20190829
  4. BORTEZOMIB [Suspect]
     Active Substance: BORTEZOMIB
     Dosage: 1.3 MG/M2, OTHER
     Route: 058
     Dates: start: 20190527, end: 20190527
  5. LENALIDOMIDE [Suspect]
     Active Substance: LENALIDOMIDE
     Indication: Plasma cell myeloma
     Dosage: 10 MG, QD
     Route: 048
     Dates: start: 20190826, end: 20190830
  6. LENALIDOMIDE [Suspect]
     Active Substance: LENALIDOMIDE
     Dosage: 10 MG, QD
     Route: 048
     Dates: start: 20190527, end: 20190602
  7. DEXAMETHASONE [Suspect]
     Active Substance: DEXAMETHASONE
     Indication: Plasma cell myeloma
     Dosage: 20 MG, DAYS 1, 2, 4, 5, 8, 9, 11, 12, 15, 22, 23, 25, 26, 29, 30, 32, AND 33
     Route: 048
     Dates: start: 20190830, end: 20190830
  8. DEXAMETHASONE [Suspect]
     Active Substance: DEXAMETHASONE
     Dosage: 20 MG, QW
     Route: 042
     Dates: start: 20190527, end: 20190527
  9. CALCITRIOL [Concomitant]
     Active Substance: CALCITRIOL
     Indication: Prophylaxis
     Dosage: UNK UNK, UNK
     Route: 048
     Dates: start: 20190604, end: 20190909
  10. METHYLCOBALAMIN [Concomitant]
     Active Substance: METHYLCOBALAMIN
     Indication: Prophylaxis
     Dosage: UNK UNK, UNK
     Route: 048
     Dates: start: 20190604, end: 20190909
  11. POTASSIUM CITRATE [Concomitant]
     Active Substance: POTASSIUM CITRATE
     Indication: Prophylaxis
     Dosage: UNK UNK, UNK
     Route: 048
     Dates: start: 20190604, end: 20190909
  12. ACYCLOVIR [Concomitant]
     Active Substance: ACYCLOVIR
     Indication: Prophylaxis
     Dosage: UNK UNK, UNK
     Route: 048
     Dates: start: 20190604, end: 20190909
  13. SODIUM CHLORIDE [Concomitant]
     Active Substance: SODIUM CHLORIDE
     Dosage: UNK UNK, UNK
     Route: 048
     Dates: start: 20190618, end: 20190909
  14. SODIUM CHLORIDE [Concomitant]
     Active Substance: SODIUM CHLORIDE
     Dosage: UNK UNK, UNK
     Route: 048
     Dates: start: 20190618
  15. SODIUM CHLORIDE [Concomitant]
     Active Substance: SODIUM CHLORIDE
     Dosage: UNK UNK, UNK
     Route: 042
     Dates: start: 20190829, end: 20190829
  16. SODIUM CHLORIDE [Concomitant]
     Active Substance: SODIUM CHLORIDE
     Dosage: UNK UNK, UNK
     Route: 042
     Dates: start: 20190904, end: 20190909
  17. ENTECAVIR [Concomitant]
     Active Substance: ENTECAVIR
     Indication: Prophylaxis
     Dosage: UNK
     Route: 048
     Dates: start: 20190619, end: 20190909
  18. LIPITOR [Concomitant]
     Active Substance: ATORVASTATIN CALCIUM
     Dosage: UNK UNK, UNK
     Route: 048
     Dates: start: 20190828, end: 20190909
  19. FOLIC ACID [Concomitant]
     Active Substance: FOLIC ACID
     Dosage: UNK UNK, UNK
     Route: 048
     Dates: start: 20190828, end: 20190909
  20. TRIMETAZIDINE [Concomitant]
     Active Substance: TRIMETAZIDINE
     Indication: Prophylaxis
     Dosage: UNK UNK, UNK
     Route: 048
     Dates: start: 20190827, end: 20190909
  21. COENZYME Q10 [Concomitant]
     Active Substance: DIETARY SUPPLEMENT\UBIDECARENONE
     Indication: Prophylaxis
     Dosage: UNK UNK, UNK
     Route: 065
     Dates: start: 20190827, end: 20190909
  22. PANTOPRAZOLE [Concomitant]
     Active Substance: PANTOPRAZOLE
     Indication: Prophylaxis
     Dosage: UNK UNK, UNK
     Route: 042
     Dates: start: 20190828, end: 20190909
  23. METHIONINE AND VITAMIN B1 [Concomitant]
     Indication: Prophylaxis
     Dosage: UNK UNK, UNK
     Route: 042
     Dates: start: 20190828, end: 20190909
  24. CEFOPERAZONE [Concomitant]
     Active Substance: CEFOPERAZONE
     Dosage: UNK UNK, UNK
     Route: 042
     Dates: start: 20190829, end: 20190906
  25. VORICONAZOLE [Concomitant]
     Active Substance: VORICONAZOLE
     Dosage: UNK UNK, UNK
     Route: 048
     Dates: start: 20190904, end: 20190908
  26. CALCIUM GLUCONATE [Concomitant]
     Active Substance: CALCIUM GLUCONATE
     Dosage: UNK UNK, UNK
     Route: 042
     Dates: start: 20190902, end: 20190902
  27. CALCIUM GLUCONATE [Concomitant]
     Active Substance: CALCIUM GLUCONATE
     Dosage: UNK UNK, UNK
     Route: 048
     Dates: start: 20190902, end: 20190909
  28. CALCIUM GLUCONATE [Concomitant]
     Active Substance: CALCIUM GLUCONATE
     Dosage: UNK UNK, UNK
     Route: 042
     Dates: start: 20190908, end: 20190908
  29. CALCIUM GLUCONATE [Concomitant]
     Active Substance: CALCIUM GLUCONATE
     Dosage: UNK UNK, UNK
     Route: 042
     Dates: start: 20190905, end: 20190909
  30. POTASSIUM CHLORIDE [Concomitant]
     Active Substance: POTASSIUM CHLORIDE
     Dosage: UNK
     Route: 042
     Dates: start: 20190829, end: 20190829
  31. POTASSIUM CHLORIDE [Concomitant]
     Active Substance: POTASSIUM CHLORIDE
     Dosage: UNK
     Route: 048
     Dates: start: 20190830, end: 20190830
  32. POTASSIUM CHLORIDE [Concomitant]
     Active Substance: POTASSIUM CHLORIDE
     Dosage: UNK
     Route: 042
     Dates: start: 20190830, end: 20190830
  33. POTASSIUM CHLORIDE [Concomitant]
     Active Substance: POTASSIUM CHLORIDE
     Dosage: UNK
     Route: 042
     Dates: start: 20190904, end: 20190904
  34. POTASSIUM CHLORIDE [Concomitant]
     Active Substance: POTASSIUM CHLORIDE
     Dosage: UNK
     Route: 042
     Dates: start: 20190827, end: 20190904
  35. POTASSIUM CHLORIDE [Concomitant]
     Active Substance: POTASSIUM CHLORIDE
     Dosage: UNK
     Route: 042
     Dates: start: 20190905, end: 20190908
  36. GINKGO [Concomitant]
     Active Substance: GINKGO
     Dosage: UNK
     Route: 042
     Dates: start: 20190828, end: 20190829
  37. CALCIUM AND ZINC GLUCONATES [Concomitant]
     Indication: Prophylaxis
     Dosage: UNK
     Route: 048
     Dates: start: 20190604, end: 20190909
  38. CEFOPERAZONE\SULBACTAM SODIUM [Concomitant]
     Active Substance: CEFOPERAZONE\SULBACTAM SODIUM
     Dosage: UNK
     Route: 042
     Dates: start: 20190830, end: 20190906
  39. DICLOFENAC SODIUM [Concomitant]
     Active Substance: DICLOFENAC SODIUM
     Dosage: UNK UNK, UNK
     Route: 042
     Dates: start: 20190905, end: 20190909
  40. DICLOFENAC SODIUM [Concomitant]
     Active Substance: DICLOFENAC SODIUM
     Dosage: UNK UNK, UNK
     Route: 042
     Dates: start: 20190906, end: 20190909
  41. TORSEMIDE [Concomitant]
     Active Substance: TORSEMIDE
     Dosage: UNK
     Route: 042
     Dates: start: 20190906, end: 20190908
  42. HUMAN RED BLOOD CELL [Concomitant]
     Active Substance: HUMAN RED BLOOD CELL
     Dosage: UNK
     Route: 042
     Dates: start: 20190902, end: 20190902
  43. ASPIRIN [Concomitant]
     Active Substance: ASPIRIN
     Dosage: UNK
     Route: 048
     Dates: start: 20190827, end: 20190909
  44. MEROPENEM [Concomitant]
     Active Substance: MEROPENEM
     Dosage: UNK UNK, UNK
     Route: 048
     Dates: start: 20190906, end: 20190909
  45. MEROPENEM [Concomitant]
     Active Substance: MEROPENEM
     Dosage: UNK UNK, UNK
     Route: 042
     Dates: start: 20190906, end: 20190906
  46. LEVOFLOXACIN [Concomitant]
     Active Substance: LEVOFLOXACIN
     Dosage: UNK UNK, UNK
     Route: 042
     Dates: start: 20190906, end: 20190909
  47. TRAMADOL [Concomitant]
     Active Substance: TRAMADOL
     Dosage: UNK UNK, UNK
     Route: 048
     Dates: start: 20190827, end: 20190909
  48. TOLVAPTAN [Concomitant]
     Active Substance: TOLVAPTAN
     Dosage: UNK UNK, UNK
     Route: 048
     Dates: start: 20190829, end: 20190829
  49. TOLVAPTAN [Concomitant]
     Active Substance: TOLVAPTAN
     Dosage: UNK UNK, UNK
     Route: 048
     Dates: start: 20190829, end: 20190928
  50. DOPAMINE [Concomitant]
     Active Substance: DOPAMINE HYDROCHLORIDE
     Dosage: UNK UNK, UNK
     Route: 042
     Dates: start: 20190905, end: 20190909
  51. IBUPROFEN [Concomitant]
     Active Substance: IBUPROFEN
     Dosage: UNK UNK, UNK
     Route: 042
     Dates: start: 20190829, end: 20190909
  52. DEXTROSE\SODIUM CHLORIDE [Concomitant]
     Active Substance: DEXTROSE\SODIUM CHLORIDE
     Dosage: 5% GLUCOSE 500 ML +0.9% SODIUM CHLORIDE 500 ML
     Route: 042
     Dates: start: 20190903, end: 20190903
  53. ALBUMIN HUMAN [Concomitant]
     Active Substance: ALBUMIN HUMAN
     Dosage: UNK
     Route: 042
     Dates: start: 20190904, end: 20190904
  54. ALBUMIN HUMAN [Concomitant]
     Active Substance: ALBUMIN HUMAN
     Dosage: UNK
     Route: 042
     Dates: start: 20190906, end: 20190906
  55. ALBUMIN HUMAN [Concomitant]
     Active Substance: ALBUMIN HUMAN
     Dosage: UNK
     Route: 042
     Dates: start: 20190906, end: 20190908
  56. IMMUNE GLOBULIN NOS [Concomitant]
     Active Substance: IMMUNE GLOBULIN NOS
     Dosage: UNK
     Route: 042
     Dates: start: 20190907, end: 20190908
  57. PROPACETAMOL [Concomitant]
     Active Substance: PROPACETAMOL
     Dosage: UNK
     Route: 042
     Dates: start: 20190906, end: 20190909

REACTIONS (1)
  - Pneumonia [Fatal]

NARRATIVE: CASE EVENT DATE: 20190908
